FAERS Safety Report 8888267 (Version 1)
Quarter: 2012Q4

REPORT INFORMATION
  Report Type: 
  Country: US (occurrence: US)
  Receive Date: 20121106
  Receipt Date: 20121106
  Transmission Date: 20130627
  Serious: Yes (Other)
  Sender: FDA-Public Use
  Company Number: US-PFIZER INC-2012268469

PATIENT
  Age: 95 Year
  Sex: Female
  Weight: 63.49 kg

DRUGS (2)
  1. XALATAN [Suspect]
     Indication: GLAUCOMA BOTH EYES
     Dosage: 1 Gtt, 1x/day
     Route: 047
  2. COSOPT [Concomitant]
     Dosage: 1 Gtt, 2x/day
     Route: 047

REACTIONS (2)
  - Macular degeneration [Not Recovered/Not Resolved]
  - Retinal disorder [Not Recovered/Not Resolved]
